FAERS Safety Report 14798007 (Version 1)
Quarter: 2018Q2

REPORT INFORMATION
  Report Type: Report from Study
  Country: US (occurrence: US)
  Receive Date: 20180424
  Receipt Date: 20180424
  Transmission Date: 20180711
  Serious: Yes (Other)
  Sender: FDA-Public Use
  Company Number: US-ACADIA PHARMACEUTICALS INC.-ACA-2018-008213

PATIENT
  Sex: Female

DRUGS (3)
  1. NUPLAZID [Suspect]
     Active Substance: PIMAVANSERIN TARTRATE
     Indication: DELUSION
  2. NUPLAZID [Suspect]
     Active Substance: PIMAVANSERIN TARTRATE
     Indication: HALLUCINATION
     Dosage: 34 MG, QD
     Route: 065
     Dates: start: 20180307
  3. NUPLAZID [Suspect]
     Active Substance: PIMAVANSERIN TARTRATE
     Indication: PARKINSON^S DISEASE PSYCHOSIS

REACTIONS (14)
  - Choking [Unknown]
  - Decreased activity [Unknown]
  - Head discomfort [Unknown]
  - Pain [Unknown]
  - Fatigue [Unknown]
  - Asthma [Unknown]
  - Dry throat [Unknown]
  - Retching [Unknown]
  - Therapeutic response unexpected [Unknown]
  - Somnolence [Unknown]
  - Change in sustained attention [Unknown]
  - Anxiety [Unknown]
  - Sluggishness [Unknown]
  - Vision blurred [Unknown]
